FAERS Safety Report 25328008 (Version 3)
Quarter: 2025Q4

REPORT INFORMATION
  Report Type: Report from Study
  Country: US (occurrence: US)
  Receive Date: 20250518
  Receipt Date: 20251211
  Transmission Date: 20260118
  Serious: Yes (Other)
  Sender: TRAVERE THERAPEUTICS
  Company Number: US-TRAVERE-2025TVT00675

PATIENT
  Age: 43 Year
  Sex: Female
  Weight: 106 kg

DRUGS (11)
  1. FILSPARI [Suspect]
     Active Substance: SPARSENTAN
     Indication: IgA nephropathy
     Route: 048
     Dates: start: 20250323, end: 20250406
  2. FILSPARI [Suspect]
     Active Substance: SPARSENTAN
     Route: 048
     Dates: start: 20250407
  3. JARDIANCE [Concomitant]
     Active Substance: EMPAGLIFLOZIN
  4. XOLAIR [Concomitant]
     Active Substance: OMALIZUMAB
  5. ROSUVASTATIN [Concomitant]
     Active Substance: ROSUVASTATIN
  6. SERTRALINE [Concomitant]
     Active Substance: SERTRALINE HYDROCHLORIDE
  7. OMALIZUMAB [Concomitant]
     Active Substance: OMALIZUMAB
  8. HYDROXYZINE [Concomitant]
     Active Substance: HYDROXYZINE HYDROCHLORIDE
  9. FLUTICASONE PROPIONATE [Concomitant]
     Active Substance: FLUTICASONE PROPIONATE
  10. EPINEPHRINE [Concomitant]
     Active Substance: EPINEPHRINE
  11. CHOLECALCIFEROL [Concomitant]
     Active Substance: CHOLECALCIFEROL

REACTIONS (3)
  - Hypertension [Unknown]
  - Bacterial test positive [None]
  - Aspartate aminotransferase increased [Unknown]

NARRATIVE: CASE EVENT DATE: 20250331
